FAERS Safety Report 7585661-0 (Version None)
Quarter: 2011Q3

REPORT INFORMATION
  Report Type: 
  Country: None (occurrence: None)
  Receive Date: 20110701
  Receipt Date: 20110620
  Transmission Date: 20111222
  Serious: Yes (Hospitalization)
  Sender: FDA-Public Use
  Company Number: JP-ASTRAZENECA-2011SE33741

PATIENT
  Sex: Male
  Weight: 60 kg

DRUGS (11)
  1. INNOLET 30R [Suspect]
     Route: 058
     Dates: start: 20110602, end: 20110602
  2. PLAVIX [Concomitant]
     Indication: THROMBOSIS PROPHYLAXIS
     Route: 048
     Dates: start: 20100930
  3. FRANDOL TAPE [Concomitant]
     Indication: VASODILATATION
     Route: 062
     Dates: start: 20101001
  4. SIGMART [Concomitant]
     Indication: CARDIOVASCULAR EVENT PROPHYLAXIS
     Route: 048
     Dates: start: 20101001, end: 20110517
  5. SYR-322 [Suspect]
     Indication: TYPE 2 DIABETES MELLITUS
     Route: 048
     Dates: start: 20101129
  6. INNOLET 30R [Suspect]
     Indication: TYPE 2 DIABETES MELLITUS
     Route: 058
     Dates: start: 20101203
  7. CANDESARTAN CILEXETIL AND HYDROCHLOROTHIAZIDE [Suspect]
     Indication: HYPERTENSION
     Route: 048
     Dates: start: 20110426
  8. ASPIRIN [Concomitant]
     Indication: THROMBOSIS PROPHYLAXIS
     Route: 048
     Dates: start: 20100929
  9. ZOLPIDEM [Suspect]
     Indication: INSOMNIA
     Dosage: DAILY
     Route: 048
     Dates: start: 20101010, end: 20110525
  10. SIGMART [Concomitant]
     Route: 048
     Dates: start: 20110519
  11. INNOLET 30R [Suspect]
     Route: 058
     Dates: end: 20110601

REACTIONS (1)
  - ANGINA UNSTABLE [None]
